FAERS Safety Report 14328779 (Version 1)
Quarter: 2017Q4

REPORT INFORMATION
  Report Type: Spontaneous
  Country: SE (occurrence: SE)
  Receive Date: 20171227
  Receipt Date: 20171227
  Transmission Date: 20180321
  Serious: Yes (Life-Threatening, Hospitalization, Other)
  Sender: FDA-Public Use
  Company Number: SE-PFIZER INC-2017547528

PATIENT
  Age: 62 Year
  Sex: Male

DRUGS (4)
  1. CLINDAMYCIN HCL [Suspect]
     Active Substance: CLINDAMYCIN HYDROCHLORIDE
     Indication: POST PROCEDURAL INFECTION
     Dosage: UNK
     Route: 048
     Dates: start: 20171102, end: 20171112
  2. CEFADROXIL. [Suspect]
     Active Substance: CEFADROXIL
     Indication: TONSILLITIS
     Dosage: 2 G, 1X/DAY
     Route: 048
     Dates: start: 20171124, end: 20171127
  3. KAVEPENIN [Suspect]
     Active Substance: PHENOXYMETHYLPENICILLIN CALCIUM
     Indication: TONSILLITIS
     Dosage: 3 G, 1X/DAY
     Route: 048
     Dates: start: 20171120, end: 20171124
  4. CANDESARTAN. [Suspect]
     Active Substance: CANDESARTAN
     Indication: HYPERTENSION
     Dosage: 4 MG, 1X/DAY
     Route: 048
     Dates: start: 20170301

REACTIONS (1)
  - Agranulocytosis [Not Recovered/Not Resolved]

NARRATIVE: CASE EVENT DATE: 20171127
